FAERS Safety Report 6897028-9 (Version None)
Quarter: 2010Q3

REPORT INFORMATION
  Report Type: 
  Country: None (occurrence: None)
  Receive Date: 20100802
  Receipt Date: 20070614
  Transmission Date: 20110219
  Serious: Yes (Hospitalization, Other)
  Sender: FDA-Public Use
  Company Number: US-PFIZER INC-2006062626

PATIENT
  Sex: Male
  Weight: 83.5 kg

DRUGS (3)
  1. LYRICA [Suspect]
     Indication: BACK PAIN
     Route: 048
     Dates: start: 20060505, end: 20060501
  2. PROSCAR [Concomitant]
  3. NEXIUM [Concomitant]

REACTIONS (2)
  - SPEECH DISORDER [None]
  - THROMBOCYTOPENIA [None]
